FAERS Safety Report 6060711-1 (Version None)
Quarter: 2009Q1

REPORT INFORMATION
  Report Type: 
  Country: None (occurrence: None)
  Receive Date: 20090130
  Receipt Date: 20090130
  Transmission Date: 20090719
  Serious: Yes (Other)
  Sender: FDA-Public Use
  Company Number: None

PATIENT
  Sex: Male
  Weight: 90.2658 kg

DRUGS (1)
  1. DIVALPROEX SODIUM [Suspect]
     Indication: CONVULSION
     Dosage: 500MGM 1 TAB AM - 2 TABS HS PO
     Route: 048
     Dates: start: 20090104, end: 20090106

REACTIONS (3)
  - CONVULSION [None]
  - DRUG INEFFECTIVE [None]
  - THERAPEUTIC RESPONSE UNEXPECTED WITH DRUG SUBSTITUTION [None]
